FAERS Safety Report 9772331 (Version 2)
Quarter: 2014Q1

REPORT INFORMATION
  Report Type: Spontaneous
  Country: NL (occurrence: NL)
  Receive Date: 20131219
  Receipt Date: 20140116
  Transmission Date: 20141002
  Serious: Yes (Other)
  Sender: FDA-Public Use
  Company Number: NL-AMGEN-NLDSP2013088020

PATIENT
  Age: 61 Year
  Sex: Male
  Weight: 105 kg

DRUGS (4)
  1. XGEVA [Suspect]
     Indication: METASTASES TO BONE
     Dosage: 120 MG, Q4WK
     Route: 058
     Dates: start: 20130123, end: 20130212
  2. OXYCODONE [Concomitant]
     Indication: PAIN
     Dosage: 20 MG, 2DD
     Route: 048
     Dates: start: 20120509
  3. OXYNORM [Concomitant]
     Indication: PAIN
     Dosage: 5 MG, 4DD
     Dates: start: 20120509
  4. PANTAZOL [Concomitant]
     Dosage: 40 MG, 1DD
     Route: 048

REACTIONS (4)
  - Metastases to bone [Unknown]
  - Cellulitis [Recovered/Resolved]
  - Skin infection [Unknown]
  - Oedema peripheral [Unknown]
